FAERS Safety Report 13341202 (Version 1)
Quarter: 2017Q1

REPORT INFORMATION
  Report Type: Spontaneous
  Country: US (occurrence: US)
  Receive Date: 20170315
  Receipt Date: 20170315
  Transmission Date: 20170428
  Serious: Yes (Other)
  Sender: FDA-Public Use
  Company Number: None

PATIENT
  Age: 57 Year
  Sex: Female
  Weight: 70.65 kg

DRUGS (10)
  1. NEURONTIN [Concomitant]
     Active Substance: GABAPENTIN
  2. LUNESTA [Concomitant]
     Active Substance: ESZOPICLONE
  3. BENZTROPINE [Concomitant]
     Active Substance: BENZTROPINE
  4. POTASSIUM [Concomitant]
     Active Substance: POTASSIUM
  5. REMERON [Concomitant]
     Active Substance: MIRTAZAPINE
  6. ZIPRASIDONE. [Suspect]
     Active Substance: ZIPRASIDONE
     Indication: SCHIZOPHRENIA
     Route: 048
     Dates: start: 20170215, end: 20170314
  7. HYDROXYZINE [Concomitant]
     Active Substance: HYDROXYZINE HYDROCHLORIDE
  8. GEODON [Concomitant]
     Active Substance: ZIPRASIDONE HYDROCHLORIDE\ZIPRASIDONE MESYLATE
  9. TRAZODONE [Concomitant]
     Active Substance: TRAZODONE HYDROCHLORIDE
  10. LATUDA [Concomitant]
     Active Substance: LURASIDONE HYDROCHLORIDE

REACTIONS (4)
  - Akathisia [None]
  - Condition aggravated [None]
  - Paranoia [None]
  - Restlessness [None]

NARRATIVE: CASE EVENT DATE: 20170215
